FAERS Safety Report 20921501 (Version 3)
Quarter: 2023Q1

REPORT INFORMATION
  Report Type: Report from Study
  Country: US (occurrence: US)
  Receive Date: 20220606
  Receipt Date: 20230329
  Transmission Date: 20230418
  Serious: Yes (Hospitalization)
  Sender: FDA-Public Use
  Company Number: US-BAUSCH-BL-2022-014105

PATIENT
  Age: 63 Year
  Sex: Female

DRUGS (1)
  1. XIFAXAN [Suspect]
     Active Substance: RIFAXIMIN
     Indication: Hepatic encephalopathy
     Route: 048

REACTIONS (4)
  - Sepsis [Unknown]
  - Fall [Unknown]
  - Confusional state [Unknown]
  - Diarrhoea infectious [Not Recovered/Not Resolved]

NARRATIVE: CASE EVENT DATE: 20230101
